FAERS Safety Report 11168576 (Version 2)
Quarter: 2015Q2

REPORT INFORMATION
  Report Type: Spontaneous
  Country: US (occurrence: US)
  Receive Date: 20150605
  Receipt Date: 20150608
  Transmission Date: 20150821
  Serious: Yes (Life-Threatening)
  Sender: FDA-Public Use
  Company Number: US-BAYER-2015-278206

PATIENT
  Age: 53 Year
  Sex: Male

DRUGS (1)
  1. BETASERON [Suspect]
     Active Substance: INTERFERON BETA-1B
     Indication: MULTIPLE SCLEROSIS
     Dosage: 0.3 MG, QOD
     Route: 058
     Dates: start: 20121004

REACTIONS (11)
  - Swelling [None]
  - Tremor [Recovered/Resolved]
  - Body temperature increased [Not Recovered/Not Resolved]
  - Flushing [None]
  - Rash [None]
  - Vomiting [None]
  - Pyrexia [None]
  - Malaise [Not Recovered/Not Resolved]
  - Swelling face [Not Recovered/Not Resolved]
  - Blood pressure increased [Not Recovered/Not Resolved]
  - Heart rate increased [None]

NARRATIVE: CASE EVENT DATE: 20150526
